FAERS Safety Report 4316101-2 (Version None)
Quarter: 2004Q1

REPORT INFORMATION
  Report Type: 
  Country: None (occurrence: None)
  Receive Date: 20040312
  Receipt Date: 20040308
  Transmission Date: 20041129
  Serious: Yes (Disabling)
  Sender: FDA-Public Use
  Company Number: 200412957GDDC

PATIENT
  Age: 80 Year
  Sex: Female

DRUGS (15)
  1. ENOXAPARIN SODIUM [Suspect]
     Indication: DEEP VENOUS THROMBOSIS PROPHYLAXIS
     Route: 058
     Dates: start: 20040207, end: 20040223
  2. RABEPRAZOLE SODIUM [Concomitant]
     Route: 048
     Dates: end: 20040220
  3. INSULIN [Concomitant]
     Dates: start: 20040207, end: 20040208
  4. FRUSEMIDE [Concomitant]
     Route: 042
     Dates: start: 20040208, end: 20040208
  5. SANDOCAL [Concomitant]
     Route: 048
     Dates: start: 20040214, end: 20040216
  6. ASPIRIN [Concomitant]
  7. NEFOPAM HYDROCHLORIDE [Concomitant]
  8. CO-AMILOFRUSE [Concomitant]
  9. PARACETAMOL [Concomitant]
     Route: 048
  10. CYCLIZINE [Concomitant]
     Route: 048
  11. CEFUROXIME [Concomitant]
     Route: 042
  12. RANITIDINE [Concomitant]
     Route: 042
  13. MORPHINE [Concomitant]
     Route: 058
  14. METOCLOPRAMIDE [Concomitant]
     Route: 048
  15. CHLORAMPHENICOL [Concomitant]
     Route: 061

REACTIONS (1)
  - CEREBRAL HAEMORRHAGE [None]
